FAERS Safety Report 11952593 (Version 4)
Quarter: 2016Q1

REPORT INFORMATION
  Report Type: Spontaneous
  Country: IT (occurrence: IT)
  Receive Date: 20160126
  Receipt Date: 20160207
  Transmission Date: 20160526
  Serious: Yes (Hospitalization)
  Sender: FDA-Public Use
  Company Number: IT-TEVA-627470ACC

PATIENT
  Age: 17 Year
  Sex: Male

DRUGS (2)
  1. OLANZAPINE. [Suspect]
     Active Substance: OLANZAPINE
     Indication: PERSONALITY DISORDER
     Dosage: 2.5 MILLIGRAM DAILY; 2.5 MG DAILY
     Route: 048
     Dates: start: 20151223, end: 20151223
  2. ESCITALOPRAM [Suspect]
     Active Substance: ESCITALOPRAM OXALATE
     Indication: PERSONALITY DISORDER
     Dosage: 10 MG TOTAL
     Route: 048
     Dates: start: 20151223, end: 20151223

REACTIONS (4)
  - Intentional overdose [Unknown]
  - Malaise [Unknown]
  - Electrocardiogram QT prolonged [Unknown]
  - Intentional self-injury [Unknown]

NARRATIVE: CASE EVENT DATE: 20151224
